FAERS Safety Report 5867768-9 (Version None)
Quarter: 2008Q3

REPORT INFORMATION
  Report Type: 
  Country: None (occurrence: None)
  Receive Date: 20080902
  Receipt Date: 20080826
  Transmission Date: 20090109
  Serious: Yes (Hospitalization)
  Sender: FDA-Public Use
  Company Number: ES-AVENTIS-200818097GDDC

PATIENT
  Age: 41 Year
  Sex: Female

DRUGS (3)
  1. DOCETAXEL [Suspect]
     Indication: BREAST CANCER METASTATIC
     Route: 042
     Dates: start: 20080617
  2. HERCEPTIN [Suspect]
     Indication: BREAST CANCER METASTATIC
     Route: 042
     Dates: start: 20080616
  3. POLARAMINE                         /00043702/ [Concomitant]
     Dates: start: 20080616

REACTIONS (4)
  - ANAEMIA [None]
  - CHOLECYSTITIS [None]
  - FEBRILE NEUTROPENIA [None]
  - PERFORMANCE STATUS DECREASED [None]
